FAERS Safety Report 6331184-6 (Version None)
Quarter: 2009Q3

REPORT INFORMATION
  Report Type: 
  Country: None (occurrence: None)
  Receive Date: 20090827
  Receipt Date: 20090824
  Transmission Date: 20100115
  Serious: Yes (Other)
  Sender: FDA-Public Use
  Company Number: DE-AVENTIS-200911671DE

PATIENT
  Age: 79 Year
  Sex: Female

DRUGS (1)
  1. LANTUS [Suspect]
     Dosage: DOSE: NOT REPORTED
     Dates: start: 20040101

REACTIONS (1)
  - BLADDER CANCER [None]
